FAERS Safety Report 5254084-1 (Version None)
Quarter: 2007Q1

REPORT INFORMATION
  Report Type: 
  Country: None (occurrence: None)
  Receive Date: 20070302
  Receipt Date: 20070222
  Transmission Date: 20070707
  Serious: Yes (Other)
  Sender: FDA-Public Use
  Company Number: 2006UW20396

PATIENT
  Age: 64 Year
  Sex: Female
  Weight: 72.7 kg

DRUGS (13)
  1. ARIMIDEX [Suspect]
     Indication: BREAST CANCER FEMALE
     Route: 048
     Dates: start: 20031101, end: 20061101
  2. SYNTHROID [Concomitant]
     Route: 048
  3. TRANXENE [Concomitant]
  4. LIPITOR [Concomitant]
     Route: 048
  5. LISINOPRIL [Concomitant]
     Route: 048
  6. LEXAPRO [Concomitant]
     Route: 048
  7. PROTONIX [Concomitant]
  8. RHINOCORT [Concomitant]
  9. ATARAX [Concomitant]
  10. LIDODERM [Concomitant]
  11. VITAMIN D [Concomitant]
  12. TYLENOL [Concomitant]
     Indication: ARTHRITIS
  13. CREAM [Concomitant]
     Indication: RADIOTHERAPY

REACTIONS (18)
  - ALOPECIA [None]
  - ARTHRITIS [None]
  - ASTHENIA [None]
  - BONE DENSITY DECREASED [None]
  - BONE PAIN [None]
  - CONDITION AGGRAVATED [None]
  - COUGH [None]
  - DECREASED APPETITE [None]
  - DIABETES MELLITUS [None]
  - FATIGUE [None]
  - FIBROMYALGIA [None]
  - GROIN PAIN [None]
  - HAIR DISORDER [None]
  - HYPERAESTHESIA [None]
  - HYPOAESTHESIA [None]
  - OSTEOPENIA [None]
  - PAIN [None]
  - PRURITUS GENITAL [None]
